FAERS Safety Report 13666446 (Version 1)
Quarter: 2017Q2

REPORT INFORMATION
  Report Type: Spontaneous
  Country: US (occurrence: US)
  Receive Date: 20170619
  Receipt Date: 20170619
  Transmission Date: 20170830
  Serious: No
  Sender: FDA-Public Use
  Company Number: US-ROCHE-1320376

PATIENT
  Sex: Male

DRUGS (14)
  1. NITROL [Concomitant]
     Active Substance: NITROGLYCERIN
  2. DILANTIN [Concomitant]
     Active Substance: PHENYTOIN
  3. LISINOPRIL. [Concomitant]
     Active Substance: LISINOPRIL
  4. FLOMAX [Concomitant]
     Active Substance: TAMSULOSIN HYDROCHLORIDE
  5. XELODA [Suspect]
     Active Substance: CAPECITABINE
     Dosage: 4 TABLETS MONDAY TO FRIDAY
     Route: 065
     Dates: start: 20131109
  6. VITAMIN C [Concomitant]
     Active Substance: ASCORBIC ACID
  7. COREG [Concomitant]
     Active Substance: CARVEDILOL
     Route: 065
  8. XELODA [Suspect]
     Active Substance: CAPECITABINE
     Indication: PRODUCT USED FOR UNKNOWN INDICATION
     Dosage: 1 TABLET OF 150 MG TWICE DAILY MONDAY TO FRIDAY
     Route: 065
     Dates: start: 20131109
  9. SYNTHROID [Concomitant]
     Active Substance: LEVOTHYROXINE SODIUM
  10. PRILOSEC [Concomitant]
     Active Substance: OMEPRAZOLE MAGNESIUM
  11. XELODA [Suspect]
     Active Substance: CAPECITABINE
     Dosage: 3 TABLETS BY MOUTH TWICE DAILY MONDAY TO FRIDAY
     Route: 048
  12. TIKOSYN [Concomitant]
     Active Substance: DOFETILIDE
  13. XANAX [Concomitant]
     Active Substance: ALPRAZOLAM
  14. SIMVASTATIN. [Concomitant]
     Active Substance: SIMVASTATIN

REACTIONS (1)
  - Diarrhoea [Unknown]
